FAERS Safety Report 7040371-3 (Version None)
Quarter: 2010Q4

REPORT INFORMATION
  Report Type: 
  Country: None (occurrence: None)
  Receive Date: 20101008
  Receipt Date: 20101008
  Transmission Date: 20110411
  Serious: Yes (Death)
  Sender: FDA-Public Use
  Company Number: None

PATIENT
  Sex: Male
  Weight: 89.8 kg

DRUGS (11)
  1. TAXOTERE [Suspect]
     Dosage: 160.5 MG
  2. ZOLADEX [Suspect]
     Dosage: 10.08 MG
  3. ASPIRIN [Concomitant]
  4. LISINOPRIL AND HYDROCHLOROTHIAZIDE [Concomitant]
  5. IMODIUM [Concomitant]
  6. OMEPRAZOLE [Concomitant]
  7. BICLUTAMIDE [Concomitant]
  8. COMPAZINE [Concomitant]
  9. GABAPENTIN [Concomitant]
  10. METFORMIN HCL [Concomitant]
  11. METOPROLOL [Concomitant]

REACTIONS (1)
  - DEATH [None]
